FAERS Safety Report 19238464 (Version 1)
Quarter: 2021Q2

REPORT INFORMATION
  Report Type: Spontaneous
  Country: JP (occurrence: JP)
  Receive Date: 20210510
  Receipt Date: 20210510
  Transmission Date: 20210717
  Serious: Yes (Hospitalization, Other)
  Sender: FDA-Public Use
  Company Number: JP-MICRO LABS LIMITED-ML2021-01303

PATIENT
  Age: 59 Year
  Sex: Female

DRUGS (7)
  1. HANSHIRENTO [HERBALS] [Suspect]
     Active Substance: HERBALS
     Dates: end: 20200216
  2. VINORELBINE [Concomitant]
     Active Substance: VINORELBINE TARTRATE
  3. ATORVASTATIN [Suspect]
     Active Substance: ATORVASTATIN
  4. NINJINYOEITO [HERBALS] [Suspect]
     Active Substance: HERBALS
     Dates: end: 20200216
  5. ZENSHIKUNSHITO [HERBALS] [Suspect]
     Active Substance: HERBALS
     Dates: end: 20200216
  6. CISPLATIN. [Concomitant]
     Active Substance: CISPLATIN
  7. LEVOTHYROXINE. [Concomitant]
     Active Substance: LEVOTHYROXINE

REACTIONS (2)
  - Drug interaction [Unknown]
  - Liver injury [Recovering/Resolving]
